FAERS Safety Report 7808265-0 (Version None)
Quarter: 2011Q4

REPORT INFORMATION
  Report Type: 
  Country: None (occurrence: None)
  Receive Date: 20111012
  Receipt Date: 20111005
  Transmission Date: 20120403
  Serious: Yes (Hospitalization)
  Sender: FDA-Public Use
  Company Number: US-BIOGENIDEC-2011BI034209

PATIENT
  Age: 37 Year
  Sex: Female

DRUGS (9)
  1. HYDROCODONE BITARTRATE [Concomitant]
     Indication: HEADACHE
     Route: 048
  2. TYSABRI [Suspect]
     Indication: MULTIPLE SCLEROSIS
     Route: 042
     Dates: start: 20080806, end: 20110805
  3. HYDROCODONE BITARTRATE [Concomitant]
     Indication: PAIN
     Route: 048
  4. CYMBALTA [Concomitant]
     Route: 048
  5. IBUPROFEN [Concomitant]
     Indication: HEADACHE
  6. TRAZODONE HYDROCHLORIDE [Concomitant]
     Route: 048
  7. TYLENOL-500 [Concomitant]
     Indication: PAIN
     Route: 048
  8. LUNESTA [Concomitant]
     Route: 048
  9. SEROQUEL [Concomitant]
     Route: 048

REACTIONS (6)
  - OPPORTUNISTIC INFECTION [None]
  - MULTIPLE SCLEROSIS RELAPSE [None]
  - DEPRESSION [None]
  - MEMORY IMPAIRMENT [None]
  - WEIGHT DECREASED [None]
  - BLOOD GLUCOSE INCREASED [None]
